FAERS Safety Report 13388185 (Version 1)
Quarter: 2017Q1

REPORT INFORMATION
  Report Type: Spontaneous
  Country: US (occurrence: US)
  Receive Date: 20170330
  Receipt Date: 20170330
  Transmission Date: 20170429
  Serious: No
  Sender: FDA-Public Use
  Company Number: US-GLENMARK PHARMACEUTICALS-2016GMK024907

PATIENT

DRUGS (4)
  1. LEVOTHYROXINE. [Concomitant]
     Active Substance: LEVOTHYROXINE
     Indication: AUTOIMMUNE THYROIDITIS
     Dosage: 50 ?G, UNK
     Route: 048
  2. IMIQUIMOD. [Suspect]
     Active Substance: IMIQUIMOD
     Indication: BOWEN^S DISEASE
     Dosage: APPLY ONCE DAILY TO AFFECTED AREAS, 2 DAYS OFF, AND THEN AGAIN ONCE DAILY FOR 6 WEEKS
     Route: 061
     Dates: start: 20161013
  3. FLONASE [Concomitant]
     Active Substance: FLUTICASONE PROPIONATE
     Indication: PRODUCT USED FOR UNKNOWN INDICATION
     Dosage: UNK
     Route: 065
  4. CETIRIZINE [Concomitant]
     Active Substance: CETIRIZINE HYDROCHLORIDE
     Indication: PRODUCT USED FOR UNKNOWN INDICATION
     Dosage: UNK
     Route: 065

REACTIONS (5)
  - Product use issue [Unknown]
  - Application site pain [Recovering/Resolving]
  - Headache [Recovered/Resolved]
  - Rash [Recovered/Resolved]
  - Application site pruritus [Recovering/Resolving]

NARRATIVE: CASE EVENT DATE: 20161017
